FAERS Safety Report 5234216-1 (Version None)
Quarter: 2007Q1

REPORT INFORMATION
  Report Type: 
  Country: None (occurrence: None)
  Receive Date: 20070209
  Receipt Date: 20070205
  Transmission Date: 20070707
  Serious: Yes (Hospitalization)
  Sender: FDA-Public Use
  Company Number: US-SOLVAY-00207000344

PATIENT
  Age: 936 Month
  Sex: Male
  Weight: 84 kg

DRUGS (6)
  1. VITAMINS [Concomitant]
     Indication: ROUTINE HEALTH MAINTENANCE
     Dosage: DAILY DOSE:  UNKNOWN
     Route: 048
  2. ANDROGEL [Suspect]
     Indication: BLOOD TESTOSTERONE DECREASED
     Dosage: DAILY DOSE: 5 GRAM(S)
     Route: 062
     Dates: start: 20000101, end: 20030101
  3. ANDROGEL [Suspect]
     Dosage: DAILY DOSE: 10 GRAM(S)
     Route: 062
     Dates: start: 20030101, end: 20060509
  4. ANDROGEL [Suspect]
     Dosage: DAILY DOSE: 10 GRAM(S)
     Route: 062
     Dates: start: 20061101
  5. VIAGRA [Concomitant]
     Indication: ERECTILE DYSFUNCTION
     Dosage: DAILY DOSE:  UNKNOWN
     Route: 048
     Dates: end: 20060509
  6. VIAGRA [Concomitant]
     Dosage: DAILY DOSE:  UNKNOWN
     Route: 048
     Dates: start: 20060101

REACTIONS (1)
  - MYOCARDIAL INFARCTION [None]
